FAERS Safety Report 5001985-5 (Version None)
Quarter: 2006Q2

REPORT INFORMATION
  Report Type: 
  Country: None (occurrence: None)
  Receive Date: 20060515
  Receipt Date: 20060309
  Transmission Date: 20061013
  Serious: Yes (Life-Threatening)
  Sender: FDA-Public Use
  Company Number: AU-ROCHE-439636

PATIENT
  Age: 38 Year
  Sex: Female
  Weight: 75 kg

DRUGS (2)
  1. XENICAL [Suspect]
     Indication: OBESITY
     Dosage: PATIENT RECEIVED ONE CAPSULE
     Route: 048
     Dates: start: 20060120, end: 20060121
  2. ST. JOHN'S WORT [Concomitant]

REACTIONS (6)
  - CHOKING [None]
  - HEADACHE [None]
  - HYPERSENSITIVITY [None]
  - MALAISE [None]
  - NAUSEA [None]
  - SWELLING FACE [None]
